FAERS Safety Report 6372096-1 (Version None)
Quarter: 2009Q3

REPORT INFORMATION
  Report Type: 
  Country: None (occurrence: None)
  Receive Date: 20090917
  Receipt Date: 20090904
  Transmission Date: 20100115
  Serious: Yes (Other)
  Sender: FDA-Public Use
  Company Number: ADR18922009

PATIENT
  Age: 76 Year
  Sex: Male

DRUGS (3)
  1. SALBUTAMOL (MFR: UNKNOWN) [Suspect]
     Indication: CHRONIC OBSTRUCTIVE PULMONARY DISEASE
     Dosage: INHALATION, 1 DF (4/1 DAY)
     Route: 055
     Dates: start: 20060505, end: 20060705
  2. ATROVENT (1 DF) [Concomitant]
  3. IPRATROPIUM [Concomitant]

REACTIONS (2)
  - EMOTIONAL DISTRESS [None]
  - RASH GENERALISED [None]
